FAERS Safety Report 10136425 (Version 2)
Quarter: 2014Q2

REPORT INFORMATION
  Report Type: Spontaneous
  Country: FR (occurrence: None)
  Receive Date: 20140425
  Receipt Date: 20140620
  Transmission Date: 20141212
  Serious: Yes (Death)
  Sender: FDA-Public Use
  Company Number: FK201401437

PATIENT
  Age: 57 Year
  Sex: Female
  Weight: 115 kg

DRUGS (5)
  1. PROPOFOL FRESENIUS [Suspect]
     Indication: INDUCTION OF ANAESTHESIA
     Route: 042
     Dates: start: 20140317, end: 20140317
  2. SUFENTANIL [Suspect]
     Indication: INDUCTION OF ANAESTHESIA
     Dates: start: 20140317
  3. KETAMINE [Suspect]
     Indication: INDUCTION OF ANAESTHESIA
     Route: 042
     Dates: start: 20140317
  4. MIDAZOLAM [Suspect]
     Indication: INDUCTION OF ANAESTHESIA
     Route: 042
     Dates: start: 20140317
  5. CISATRACURIUM BESYLATE [Suspect]
     Indication: INDUCTION OF ANAESTHESIA
     Route: 042
     Dates: start: 20140317

REACTIONS (3)
  - Cardiac arrest [None]
  - Anaphylactic shock [None]
  - Ventricular fibrillation [None]
